FAERS Safety Report 7942164-9 (Version None)
Quarter: 2011Q4

REPORT INFORMATION
  Report Type: 
  Country: None (occurrence: None)
  Receive Date: 20111128
  Receipt Date: 20111120
  Transmission Date: 20120403
  Serious: Yes (Hospitalization)
  Sender: FDA-Public Use
  Company Number: US-AMGEN-USASP2011061601

PATIENT
  Sex: Female

DRUGS (1)
  1. ENBREL [Suspect]
     Indication: RHEUMATOID ARTHRITIS
     Dosage: 50 MG, QWK
     Dates: start: 20040101

REACTIONS (4)
  - RHEUMATOID ARTHRITIS [None]
  - ORAL FUNGAL INFECTION [None]
  - TRANSIENT ISCHAEMIC ATTACK [None]
  - VAGINAL INFECTION [None]
